FAERS Safety Report 4307656-2 (Version None)
Quarter: 2004Q1

REPORT INFORMATION
  Report Type: 
  Country: None (occurrence: None)
  Receive Date: 20040226
  Receipt Date: 20040210
  Transmission Date: 20041129
  Serious: Yes (Life-Threatening, Hospitalization)
  Sender: FDA-Public Use
  Company Number: FRWYE573010FEB04

PATIENT
  Age: 44 Year
  Sex: Male

DRUGS (3)
  1. SERESA (OXAZEPAM, TABLET, 0) [Suspect]
     Indication: DEPRESSION
     Dosage: 40 TABLETS, ORAL
     Route: 048
     Dates: start: 20040122, end: 20040122
  2. ALCOHOL (ETHANOL, 0) [Suspect]
     Dosage: 2 LITERS OF WHISKEY, ORAL
     Route: 048
     Dates: start: 20040122, end: 20040122
  3. LAROXYL (AMITRIPTYLINE HYDROCHLORIDE, 0) [Suspect]
     Indication: DEPRESSION
     Dosage: 40 TABLETS, ORAL
     Route: 048
     Dates: start: 20040122, end: 20040122

REACTIONS (6)
  - ASPIRATION [None]
  - COMA [None]
  - DRUG LEVEL ABOVE THERAPEUTIC [None]
  - HYPOTHERMIA [None]
  - INTENTIONAL OVERDOSE [None]
  - VOMITING [None]
